FAERS Safety Report 21570542 (Version 1)
Quarter: 2022Q4

REPORT INFORMATION
  Report Type: Spontaneous
  Country: US (occurrence: None)
  Receive Date: 20221109
  Receipt Date: 20221109
  Transmission Date: 20230113
  Serious: Yes (Other)
  Sender: FDA-Public Use
  Company Number: US-ROCHE-3214981

PATIENT
  Sex: Female

DRUGS (1)
  1. RITUXAN [Suspect]
     Active Substance: RITUXIMAB
     Indication: Product used for unknown indication
     Dosage: FREQUENCY- INFUSE 1000 MG INTRAVENOUSLY ON DAY 0, DAY 14 THEN EVERY 6 MONTHS THEREAFTER?DOSE- 500 MG
     Route: 041

REACTIONS (1)
  - Anaphylactic reaction [Not Recovered/Not Resolved]
